FAERS Safety Report 6923791-4 (Version None)
Quarter: 2010Q3

REPORT INFORMATION
  Report Type: 
  Country: None (occurrence: None)
  Receive Date: 20100813
  Receipt Date: 20100803
  Transmission Date: 20110219
  Serious: Yes (Hospitalization, Other)
  Sender: FDA-Public Use
  Company Number: US-ELI_LILLY_AND_COMPANY-US201008001243

PATIENT
  Sex: Female

DRUGS (4)
  1. CYMBALTA [Suspect]
     Indication: COMPLEX REGIONAL PAIN SYNDROME
     Dosage: 20 MG, 3/D
     Dates: start: 20061206, end: 20061210
  2. CYMBALTA [Suspect]
     Dosage: 30 MG, 2/D
     Dates: start: 20061210
  3. CYMBALTA [Suspect]
     Dosage: 30 MG, 2/D
     Dates: start: 20080822
  4. METHADONE HCL [Concomitant]

REACTIONS (16)
  - AGITATION [None]
  - ANGER [None]
  - ANXIETY [None]
  - BLOOD PRESSURE DECREASED [None]
  - CRYING [None]
  - DRUG WITHDRAWAL SYNDROME [None]
  - FRUSTRATION [None]
  - HYPERTENSION [None]
  - INSOMNIA [None]
  - LOSS OF CONSCIOUSNESS [None]
  - MEMORY IMPAIRMENT [None]
  - MENTAL DISORDER [None]
  - OFF LABEL USE [None]
  - PAIN [None]
  - SOMNOLENCE [None]
  - SUICIDAL IDEATION [None]
